FAERS Safety Report 15423677 (Version 1)
Quarter: 2018Q3

REPORT INFORMATION
  Report Type: Spontaneous
  Country: US (occurrence: US)
  Receive Date: 20180925
  Receipt Date: 20180925
  Transmission Date: 20181010
  Serious: No
  Sender: FDA-Public Use
  Company Number: US-BIOGEN-2018BI00624263

PATIENT
  Age: 24 Year
  Sex: Male

DRUGS (1)
  1. TYSABRI [Suspect]
     Active Substance: NATALIZUMAB
     Indication: MULTIPLE SCLEROSIS
     Route: 065
     Dates: start: 20150629

REACTIONS (6)
  - Fatigue [Unknown]
  - Motor dysfunction [Unknown]
  - Dizziness [Unknown]
  - Asthenia [Unknown]
  - Muscular weakness [Unknown]
  - Malaise [Not Recovered/Not Resolved]

NARRATIVE: CASE EVENT DATE: 201808
